FAERS Safety Report 18411230 (Version 1)
Quarter: 2020Q4

REPORT INFORMATION
  Report Type: Spontaneous
  Country: US (occurrence: US)
  Receive Date: 20201021
  Receipt Date: 20201021
  Transmission Date: 20210114
  Serious: No
  Sender: FDA-Public Use
  Company Number: US-SA-2020SA288243

PATIENT

DRUGS (3)
  1. LANTUS SOLOSTAR [Suspect]
     Active Substance: INSULIN GLARGINE
     Dosage: UNK
     Route: 065
  2. RYBELSUS [Suspect]
     Active Substance: SEMAGLUTIDE
     Dosage: UNK
     Route: 065
  3. FIASP [Suspect]
     Active Substance: INSULIN ASPART
     Dosage: UNK
     Route: 065

REACTIONS (5)
  - Flushing [Unknown]
  - Pruritus [Unknown]
  - Blood glucose increased [Unknown]
  - Burning sensation [Unknown]
  - Sinusitis [Unknown]
